FAERS Safety Report 4396504-0 (Version None)
Quarter: 2004Q3

REPORT INFORMATION
  Report Type: 
  Country: None (occurrence: None)
  Receive Date: 20040713
  Receipt Date: 20040706
  Transmission Date: 20050211
  Serious: Yes (Death)
  Sender: FDA-Public Use
  Company Number: JP-MERCK-0407USA00697

PATIENT
  Age: 12 Year
  Sex: Female

DRUGS (2)
  1. PRIMAXIN [Suspect]
     Indication: INFECTION
     Route: 041
  2. MICAFUNGIN [Suspect]
     Indication: INFECTION
     Route: 041

REACTIONS (2)
  - HAEMOLYTIC URAEMIC SYNDROME [None]
  - RENAL FAILURE ACUTE [None]
